FAERS Safety Report 14923352 (Version 3)
Quarter: 2018Q3

REPORT INFORMATION
  Report Type: Spontaneous
  Country: US (occurrence: US)
  Receive Date: 20180522
  Receipt Date: 20180727
  Transmission Date: 20181010
  Serious: Yes (Hospitalization, Other)
  Sender: FDA-Public Use
  Company Number: US-JNJFOC-20180518840

PATIENT
  Age: 58 Year
  Sex: Female
  Weight: 77.11 kg

DRUGS (15)
  1. XARELTO [Suspect]
     Active Substance: RIVAROXABAN
     Indication: THROMBOSIS PROPHYLAXIS
     Dosage: NDC NUMBER: 5045858030
     Route: 048
     Dates: start: 201710
  2. XARELTO [Suspect]
     Active Substance: RIVAROXABAN
     Indication: DEEP VEIN THROMBOSIS
     Route: 048
     Dates: start: 2018
  3. BUTALBITAL [Concomitant]
     Active Substance: BUTALBITAL
     Indication: MIGRAINE
     Dosage: 350 (UNITS UNSPECIFIED)
     Route: 065
  4. XARELTO [Suspect]
     Active Substance: RIVAROXABAN
     Indication: DEEP VEIN THROMBOSIS
     Dosage: NDC NUMBER: 5045858030
     Route: 048
     Dates: start: 201710
  5. XARELTO [Suspect]
     Active Substance: RIVAROXABAN
     Indication: THROMBOSIS
     Route: 048
     Dates: start: 20180306, end: 2018
  6. GABAPENTIN. [Concomitant]
     Active Substance: GABAPENTIN
     Dosage: 350 (UNITS UNSPECIFIED)
     Route: 065
  7. VALIUM [Concomitant]
     Active Substance: DIAZEPAM
     Indication: ANXIETY
     Route: 065
  8. SUBOXONE [Concomitant]
     Active Substance: BUPRENORPHINE HYDROCHLORIDE\NALOXONE HYDROCHLORIDE
     Dosage: 350 (UNITS UNSPECIFIED)
     Route: 065
  9. XARELTO [Suspect]
     Active Substance: RIVAROXABAN
     Indication: DEEP VEIN THROMBOSIS
     Route: 048
     Dates: start: 20180306, end: 2018
  10. VALIUM [Concomitant]
     Active Substance: DIAZEPAM
     Indication: MUSCLE RELAXANT THERAPY
     Route: 065
  11. XARELTO [Suspect]
     Active Substance: RIVAROXABAN
     Indication: THROMBOSIS
     Route: 048
     Dates: start: 2018
  12. XARELTO [Suspect]
     Active Substance: RIVAROXABAN
     Indication: THROMBOSIS
     Dosage: NDC NUMBER: 5045858030
     Route: 048
     Dates: start: 201710
  13. XARELTO [Suspect]
     Active Substance: RIVAROXABAN
     Indication: THROMBOSIS PROPHYLAXIS
     Route: 048
     Dates: start: 2018
  14. XARELTO [Suspect]
     Active Substance: RIVAROXABAN
     Indication: THROMBOSIS PROPHYLAXIS
     Route: 048
     Dates: start: 20180306, end: 2018
  15. SOMA [Concomitant]
     Active Substance: CARISOPRODOL
     Dosage: 350 (UNITS UNSPECIFIED)
     Route: 065

REACTIONS (9)
  - Product label issue [Unknown]
  - Erysipelas [Unknown]
  - Shoulder arthroplasty [Unknown]
  - Skin infection [Unknown]
  - Treatment noncompliance [Unknown]
  - Visual impairment [Unknown]
  - Incorrect drug administration duration [Unknown]
  - Deep vein thrombosis [Not Recovered/Not Resolved]
  - Thrombophlebitis superficial [Unknown]

NARRATIVE: CASE EVENT DATE: 2018
